FAERS Safety Report 21398550 (Version 1)
Quarter: 2022Q3

REPORT INFORMATION
  Report Type: Spontaneous
  Country: IR (occurrence: IR)
  Receive Date: 20220930
  Receipt Date: 20220930
  Transmission Date: 20221027
  Serious: Yes (Death)
  Sender: FDA-Public Use
  Company Number: IR-MLMSERVICE-20220919-3802848-1

PATIENT
  Age: 40 Year
  Sex: Female

DRUGS (6)
  1. DEXAMETHASONE [Suspect]
     Active Substance: DEXAMETHASONE
     Indication: Traumatic lung injury
     Dosage: ON DAY 7
     Route: 042
  2. OXYGEN [Concomitant]
     Active Substance: OXYGEN
     Indication: COVID-19
  3. OXYGEN [Concomitant]
     Active Substance: OXYGEN
     Indication: Supplementation therapy
  4. REMDESIVIR [Concomitant]
     Active Substance: REMDESIVIR
     Indication: COVID-19
     Dosage: ON DAY 1
     Route: 042
  5. REMDESIVIR [Concomitant]
     Active Substance: REMDESIVIR
     Route: 042
  6. LEVOFLOXACIN [Concomitant]
     Active Substance: LEVOFLOXACIN
     Indication: COVID-19
     Route: 042

REACTIONS (1)
  - Rhinocerebral mucormycosis [Fatal]
